FAERS Safety Report 4415460-X (Version None)
Quarter: 2004Q2

REPORT INFORMATION
  Report Type: 
  Country: None (occurrence: None)
  Receive Date: 20040621
  Receipt Date: 20031215
  Transmission Date: 20050107
  Serious: Yes (Death)
  Sender: FDA-Public Use
  Company Number: USA-2003-0012095

PATIENT
  Age: 31 Year
  Sex: Female

DRUGS (10)
  1. OXYCODONE HCL [Suspect]
  2. HYDROCODONE BITARTRATE (SIMILAR TO IND 59175)(HYDROCODONE BITARTRATE) [Suspect]
  3. MEPROBAMATE [Suspect]
  4. PROMETHAZINE [Suspect]
  5. ACETAMINOPHEN [Suspect]
  6. IBUPROFEN [Suspect]
  7. NICOTINE [Suspect]
  8. COCAINE (COCAINE) [Suspect]
  9. CARISOPRODOL [Suspect]
  10. TETRAHYDROCANNABINOL (TETRAHYDROCANNABINOL) [Suspect]

REACTIONS (2)
  - ACCIDENTAL OVERDOSE [None]
  - MULTIPLE DRUG OVERDOSE [None]
